FAERS Safety Report 8767785 (Version 1)
Quarter: 2012Q4

REPORT INFORMATION
  Report Type: 
  Country: IT (occurrence: IT)
  Receive Date: 20120905
  Receipt Date: 20120905
  Transmission Date: 20130627
  Serious: Yes (Hospitalization)
  Sender: FDA-Public Use
  Company Number: IT-ARROW-2012-15563

PATIENT
  Age: 84 Year
  Sex: Male

DRUGS (6)
  1. RAMIPRIL (UNKNOWN) [Suspect]
     Indication: HYPERTENSION
     Dosage: 5 mg, daily
     Route: 048
     Dates: start: 20110516, end: 20120515
  2. CANRENONE [Suspect]
     Indication: HYPERTENSION
     Dosage: 50 mg on alternate days, 40 tablets
     Route: 048
     Dates: start: 20110516, end: 20120515
  3. LANTUS [Concomitant]
     Indication: PRODUCT USED FOR UNKNOWN INDICATION
     Dosage: 3 ml, unknown, 5 pens disposable 3 ml subcutaneous use
     Route: 058
  4. APIDRA [Concomitant]
     Indication: PRODUCT USED FOR UNKNOWN INDICATION
     Dosage: 3 ml, unknown, use pre-filled pen (optiset) 3 ml 5 pre-filled pens
     Route: 058
  5. ACETYLSALICYLIC ACID [Concomitant]
     Indication: PRODUCT USED FOR UNKNOWN INDICATION
     Route: 065
  6. SIMVASTATIN [Concomitant]
     Indication: PRODUCT USED FOR UNKNOWN INDICATION
     Route: 065

REACTIONS (3)
  - Hyperkalaemia [Unknown]
  - Nodal arrhythmia [Unknown]
  - Renal failure [Unknown]
